FAERS Safety Report 11070073 (Version 1)
Quarter: 2015Q2

REPORT INFORMATION
  Report Type: Spontaneous
  Country: RU (occurrence: RU)
  Receive Date: 20150427
  Receipt Date: 20150427
  Transmission Date: 20150821
  Serious: Yes (Other)
  Sender: FDA-Public Use
  Company Number: RU-GLAXOSMITHKLINE-RU2015GSK055184

PATIENT
  Age: 28 Year
  Sex: Female

DRUGS (5)
  1. COMBIVIR [Suspect]
     Active Substance: LAMIVUDINE\ZIDOVUDINE
     Indication: PROPHYLAXIS
     Dosage: UNK
     Dates: start: 2007, end: 2007
  2. RITONAVIR. [Suspect]
     Active Substance: RITONAVIR
     Indication: HIV INFECTION
     Dosage: 1 DF, QD
     Dates: start: 20150306
  3. KIVEXA [Suspect]
     Active Substance: ABACAVIR SULFATE\LAMIVUDINE
     Indication: HIV INFECTION
     Dosage: UNK
     Dates: start: 2014
  4. STOCRIN [Suspect]
     Active Substance: EFAVIRENZ
     Indication: HIV INFECTION
     Dosage: UNK
     Dates: start: 201403
  5. PREZISTA [Suspect]
     Active Substance: DARUNAVIR ETHANOLATE
     Indication: HIV INFECTION
     Dosage: 800 MG, QD
     Dates: start: 20150306

REACTIONS (10)
  - Tuberculosis [Recovered/Resolved]
  - Exposure during pregnancy [Unknown]
  - Pruritus [Not Recovered/Not Resolved]
  - Alopecia [Unknown]
  - Rash erythematous [Not Recovered/Not Resolved]
  - Nightmare [Unknown]
  - Hair colour changes [Unknown]
  - Dry skin [Unknown]
  - Nasal congestion [Unknown]
  - Live birth [Unknown]

NARRATIVE: CASE EVENT DATE: 2007
